FAERS Safety Report 17880099 (Version 1)
Quarter: 2020Q2

REPORT INFORMATION
  Report Type: Spontaneous
  Country: US (occurrence: US)
  Receive Date: 20200610
  Receipt Date: 20200610
  Transmission Date: 20200714
  Serious: Yes (Other)
  Sender: FDA-Public Use
  Company Number: US-NOVOPROD-733294

PATIENT
  Sex: Female

DRUGS (1)
  1. SAXENDA [Suspect]
     Active Substance: LIRAGLUTIDE
     Indication: PRODUCT USED FOR UNKNOWN INDICATION
     Dosage: 3MG
     Route: 058
     Dates: start: 202003

REACTIONS (3)
  - Product dose omission [Unknown]
  - Blood potassium decreased [Unknown]
  - Blood phosphorus decreased [Unknown]

NARRATIVE: CASE EVENT DATE: 2020
